FAERS Safety Report 9441563 (Version 3)
Quarter: 2013Q4

REPORT INFORMATION
  Report Type: Report from Study
  Country: US (occurrence: US)
  Receive Date: 20130805
  Receipt Date: 20131007
  Transmission Date: 20140711
  Serious: Yes (Death, Hospitalization)
  Sender: FDA-Public Use
  Company Number: US-ROCHE-1222657

PATIENT
  Age: 62 Year
  Sex: Female
  Weight: 81.7 kg

DRUGS (4)
  1. BEVACIZUMAB [Suspect]
     Indication: GLIOBLASTOMA
     Dosage: LAST DOSE ADMINISTERED ON 19/AUG/2013 (GIVEN ON DAY 7 OF CYCLE 9, HENCE CYCLE 10 SKIPPED IN ORDER TO
     Route: 042
     Dates: start: 20130422
  2. BLINDED DASATINIB [Suspect]
     Indication: GLIOBLASTOMA
     Dosage: LAST DOSE ADMINISTERED WAS 200 MG
     Route: 048
     Dates: start: 20130422, end: 20130504
  3. BLINDED DASATINIB [Suspect]
     Dosage: LAST ADMINISTERED DOSE ON 31/AUG/2013; DOSE HELD
     Route: 048
     Dates: start: 20130826, end: 20130831
  4. DEXAMETHASONE [Concomitant]

REACTIONS (6)
  - Disease progression [Fatal]
  - Convulsion [Unknown]
  - Fatigue [Unknown]
  - Convulsion [Recovered/Resolved]
  - Somnolence [Recovering/Resolving]
  - Hypokalaemia [Not Recovered/Not Resolved]
